FAERS Safety Report 18544067 (Version 1)
Quarter: 2020Q4

REPORT INFORMATION
  Report Type: Spontaneous
  Country: US (occurrence: US)
  Receive Date: 20201124
  Receipt Date: 20201124
  Transmission Date: 20210114
  Serious: Yes (Death)
  Sender: FDA-Public Use
  Company Number: None

PATIENT
  Sex: Male

DRUGS (1)
  1. ZARXIO [Suspect]
     Active Substance: FILGRASTIM-SNDZ
     Indication: PLASMA CELL MYELOMA
     Dosage: ?          OTHER DOSE:1 SYR;OTHER FREQUENCY:QD X 6D;OTHER ROUTE: SQ - EXCEPT CHEMO DAY?
     Dates: start: 20201007, end: 20201112

REACTIONS (1)
  - Death [None]
